FAERS Safety Report 4730127-6 (Version None)
Quarter: 2005Q3

REPORT INFORMATION
  Report Type: 
  Country: None (occurrence: None)
  Receive Date: 20050728
  Receipt Date: 20050718
  Transmission Date: 20060218
  Serious: Yes (Death, Other)
  Sender: FDA-Public Use
  Company Number: 2005-07-1414

PATIENT
  Age: 71 Year
  Sex: Female

DRUGS (5)
  1. INTRON A [Suspect]
     Indication: LYMPHOMA
     Dosage: 3MU/M2 D2-14 SUBCUTANEOUS
     Route: 058
  2. FLUDARABINE INJECTABLE [Suspect]
     Indication: LYMPHOMA
     Dosage: 25MG/M2 D1-3 INTRAVENOUS
     Route: 042
  3. MITOXANTRONE [Suspect]
     Indication: LYMPHOMA
     Dosage: 10MG/M2 D1 INTRAVENOUS
     Route: 042
  4. DEXAMETHASONE [Suspect]
     Indication: LYMPHOMA
     Dosage: SEE IMAGE
  5. RITUXIMAB INJECTABLE [Suspect]
     Indication: LYMPHOMA
     Dosage: 375 MG/M^2 INTRAVENOUS
     Route: 042

REACTIONS (3)
  - CHROMOSOME ANALYSIS ABNORMAL [None]
  - CYTOGENETIC ANALYSIS ABNORMAL [None]
  - MYELODYSPLASTIC SYNDROME [None]
